FAERS Safety Report 7292842-2 (Version None)
Quarter: 2011Q1

REPORT INFORMATION
  Report Type: 
  Country: None (occurrence: None)
  Receive Date: 20110209
  Receipt Date: 20110209
  Transmission Date: 20110831
  Serious: Yes (Other)
  Sender: FDA-Public Use
  Company Number: None

PATIENT
  Age: 50 Year
  Sex: Female
  Weight: 61.2356 kg

DRUGS (1)
  1. WELCHOL [Suspect]
     Indication: BLOOD CHOLESTEROL INCREASED
     Dosage: 3.75 G ONCE A WEEK PO
     Route: 048
     Dates: start: 20110206, end: 20110206

REACTIONS (8)
  - PRURITUS [None]
  - EAR PAIN [None]
  - DIARRHOEA [None]
  - HEADACHE [None]
  - VOMITING [None]
  - ABDOMINAL PAIN UPPER [None]
  - EYE PRURITUS [None]
  - NASOPHARYNGITIS [None]
